FAERS Safety Report 17400497 (Version 2)
Quarter: 2020Q1

REPORT INFORMATION
  Report Type: Report from Study
  Country: US (occurrence: US)
  Receive Date: 20200211
  Receipt Date: 20200217
  Transmission Date: 20200409
  Serious: No
  Sender: FDA-Public Use
  Company Number: US-AMGEN-USASP2019195192

PATIENT
  Age: 80 Year
  Sex: Female
  Weight: 71.2 kg

DRUGS (3)
  1. REPATHA [Suspect]
     Active Substance: EVOLOCUMAB
     Indication: BLOOD CHOLESTEROL INCREASED
     Dosage: 140 MILLIGRAM, Q2WK
     Route: 065
     Dates: start: 201909
  2. REPATHA [Suspect]
     Active Substance: EVOLOCUMAB
     Dosage: 140 MILLIGRAM, Q2WK
     Route: 065
  3. BRILINTA [Concomitant]
     Active Substance: TICAGRELOR

REACTIONS (6)
  - Dyspnoea [Unknown]
  - Nasopharyngitis [Recovered/Resolved]
  - Device malfunction [Unknown]
  - Wrong technique in product usage process [Unknown]
  - Pruritus [Unknown]
  - Cough [Unknown]

NARRATIVE: CASE EVENT DATE: 2019
